FAERS Safety Report 5135260-5 (Version None)
Quarter: 2006Q4

REPORT INFORMATION
  Report Type: 
  Country: None (occurrence: None)
  Receive Date: 20061024
  Receipt Date: 20061024
  Transmission Date: 20070319
  Serious: Yes (Hospitalization)
  Sender: FDA-Public Use
  Company Number: None

PATIENT
  Sex: Male
  Weight: 88.6 kg

DRUGS (8)
  1. CYCLOPHOSPHAMIDE [Suspect]
     Dosage: 1660 MG
     Dates: end: 20061011
  2. DOXORUBICIN HYDROCHLORIDE [Suspect]
     Dosage: 110 MG
     Dates: end: 20061011
  3. PREDNISONE TAB [Suspect]
     Dosage: 500 MG
     Dates: end: 20061015
  4. RITUXIMAB (MOAB C2B8 ANTI CD20, CHIMERIC) [Suspect]
     Dosage: 1660 MG
     Dates: end: 20061009
  5. VINCRISTINE SULFATE [Suspect]
     Dosage: 2 MG
     Dates: end: 20061011
  6. .. [Concomitant]
  7. .. [Concomitant]
  8. .. [Concomitant]

REACTIONS (5)
  - ABDOMINAL PAIN [None]
  - ASCITES [None]
  - CHILLS [None]
  - ORAL INTAKE REDUCED [None]
  - PERITONITIS BACTERIAL [None]
